FAERS Safety Report 4389364-5 (Version None)
Quarter: 2004Q2

REPORT INFORMATION
  Report Type: 
  Country: None (occurrence: None)
  Receive Date: 20040630
  Receipt Date: 20040112
  Transmission Date: 20050107
  Serious: Yes (Hospitalization)
  Sender: FDA-Public Use
  Company Number: 2004220339FR

PATIENT
  Age: 76 Year
  Sex: Male
  Weight: 78 kg

DRUGS (7)
  1. SOLU-MEDROL [Suspect]
     Indication: BRONCHITIS
     Dosage: 40 MG, QD, INTRAMUSCULAR
     Route: 030
     Dates: start: 20031128, end: 20031202
  2. ROCEPHIN [Suspect]
     Indication: BRONCHITIS
     Dosage: 1 G, QD, INTRAMUSCULAR
     Route: 030
     Dates: start: 20031128, end: 20031202
  3. SYMBICORT [Concomitant]
  4. NASACORT [Concomitant]
  5. BRICANYL [Concomitant]
  6. SURBRONC [Concomitant]
  7. DAFLON (DIOSMIN) [Concomitant]

REACTIONS (3)
  - ERYTHEMA [None]
  - FACE OEDEMA [None]
  - PRURITUS [None]
